FAERS Safety Report 8391040-9 (Version None)
Quarter: 2012Q2

REPORT INFORMATION
  Report Type: 
  Country: None (occurrence: None)
  Receive Date: 20120529
  Receipt Date: 20120521
  Transmission Date: 20120825
  Serious: Yes (Hospitalization)
  Sender: FDA-Public Use
  Company Number: US-BAYER-2012-051576

PATIENT
  Age: 37 Year
  Sex: Female
  Weight: 70.295 kg

DRUGS (7)
  1. TOPIRAMATE [Concomitant]
     Indication: MIGRAINE
     Dosage: 25 MG, BID
     Route: 048
     Dates: start: 20110213, end: 20110423
  2. DILAUDID [Concomitant]
  3. ZOLPIDEM [Concomitant]
     Dosage: 10 MG, TAKE ONE TABLET AT BEDTIME AS NEEDED
     Route: 048
     Dates: start: 20110227, end: 20110426
  4. BUPROPION HCL [Concomitant]
     Indication: DEPRESSION
     Dosage: 300 MG, QD
     Route: 048
     Dates: start: 20110227, end: 20110426
  5. LORAZEPAM [Concomitant]
     Dosage: 0.5 MG, TAKE ONE TABLET TWICE DAILY AS NEEDED
     Route: 048
     Dates: start: 20110227, end: 20110426
  6. YAZ [Suspect]
  7. PROPRANOLOL [Concomitant]
     Dosage: 10 MG, DAILY AS NEEDED

REACTIONS (1)
  - PULMONARY EMBOLISM [None]
